FAERS Safety Report 6787487-4 (Version None)
Quarter: 2010Q2

REPORT INFORMATION
  Report Type: 
  Country: None (occurrence: None)
  Receive Date: 20100623
  Receipt Date: 20090106
  Transmission Date: 20101027
  Serious: Yes (Other)
  Sender: FDA-Public Use
  Company Number: US-PFIZER INC-2006124256

PATIENT
  Sex: Female
  Weight: 122.45 kg

DRUGS (4)
  1. DEPO-PROVERA [Suspect]
     Indication: CONTRACEPTION
     Dosage: 1ST INJECTION
     Route: 030
     Dates: start: 19970701, end: 19970701
  2. DEPO-PROVERA [Suspect]
     Dosage: LAST INJECTION
     Route: 030
     Dates: start: 20051101, end: 20051101
  3. ADVIL LIQUI-GELS [Concomitant]
  4. MULTI-VITAMINS [Concomitant]

REACTIONS (8)
  - ARTHRALGIA [None]
  - DRUG INEFFECTIVE [None]
  - EMOTIONAL DISORDER [None]
  - FALL [None]
  - LIBIDO DECREASED [None]
  - LIBIDO INCREASED [None]
  - MENSTRUAL DISORDER [None]
  - UNINTENDED PREGNANCY [None]
